FAERS Safety Report 5051748-X (Version None)
Quarter: 2006Q3

REPORT INFORMATION
  Report Type: 
  Country: None (occurrence: None)
  Receive Date: 20060711
  Receipt Date: 20060616
  Transmission Date: 20061208
  Serious: Yes (Other)
  Sender: FDA-Public Use
  Company Number: US200604001967

PATIENT
  Age: 47 Year
  Sex: Female
  Weight: 60.5 kg

DRUGS (10)
  1. ALIMTA [Suspect]
     Indication: NON-SMALL CELL LUNG CANCER
     Dosage: 795 MG, INTRAVENOUS
     Route: 042
     Dates: start: 20060329
  2. DEXAMETHASONE [Concomitant]
  3. CYANOCOBALAMIN [Concomitant]
  4. FOLIC ACID [Concomitant]
  5. COUMADIN [Concomitant]
  6. ZOCOR [Concomitant]
  7. NEURONTIN [Concomitant]
  8. AVANDIA [Concomitant]
  9. ACIPHEX [Concomitant]
  10. VERAPAMIL [Concomitant]

REACTIONS (6)
  - BLOOD CREATININE INCREASED [None]
  - ERYTHEMA [None]
  - NEUTROPHIL COUNT DECREASED [None]
  - PRURITUS [None]
  - THROMBOCYTOPENIA [None]
  - WHITE BLOOD CELL COUNT DECREASED [None]
